FAERS Safety Report 14554661 (Version 1)
Quarter: 2018Q1

REPORT INFORMATION
  Report Type: Spontaneous
  Country: US (occurrence: US)
  Receive Date: 20180217
  Receipt Date: 20180217
  Transmission Date: 20180509
  Serious: Yes (Hospitalization)
  Sender: FDA-Public Use
  Company Number: None

PATIENT
  Age: 50 Year
  Sex: Female

DRUGS (3)
  1. GAMMAGARD [Suspect]
     Active Substance: HUMAN IMMUNOGLOBULIN G
     Route: 042
     Dates: start: 20171116, end: 20171117
  2. GAMMAGARD [Suspect]
     Active Substance: HUMAN IMMUNOGLOBULIN G
     Indication: MULTIPLE SCLEROSIS
     Route: 042
     Dates: start: 20171116, end: 20171117
  3. GAMMAGARD [Suspect]
     Active Substance: HUMAN IMMUNOGLOBULIN G
     Indication: IMMUNODEFICIENCY COMMON VARIABLE
     Route: 042
     Dates: start: 20171116, end: 20171117

REACTIONS (3)
  - Blood pressure increased [None]
  - Lethargy [None]
  - Unresponsive to stimuli [None]

NARRATIVE: CASE EVENT DATE: 20171117
